FAERS Safety Report 7174564-1 (Version None)
Quarter: 2010Q4

REPORT INFORMATION
  Report Type: 
  Country: None (occurrence: None)
  Receive Date: 20101219
  Receipt Date: 20100331
  Transmission Date: 20110411
  Serious: No
  Sender: FDA-Public Use
  Company Number: US-AMGEN-KDL403147

PATIENT

DRUGS (22)
  1. ENBREL [Suspect]
     Indication: PRODUCT USED FOR UNKNOWN INDICATION
     Dosage: 25 MG, 2 TIMES/WK
     Route: 058
  2. METHOTREXATE [Concomitant]
     Dosage: 250 MG, UNK
  3. CENTRUM SILVER [Concomitant]
  4. LEVOCETIRIZINE DIHYDROCHLORIDE [Concomitant]
     Dosage: 5 MG, UNK
     Route: 048
  5. FUROSEMIDE [Concomitant]
     Dosage: 40 MG, UNK
     Route: 048
  6. ESTROGENS CONJUGATED [Concomitant]
     Dosage: .9 MG, UNK
     Route: 047
  7. LEVOTHYROXINE SODIUM [Concomitant]
     Dosage: 88 A?G, UNK
     Route: 048
  8. POTASSIUM CHLORIDE [Concomitant]
     Dosage: 20 MEQ, UNK
  9. FEXOFENADINE HCL [Concomitant]
     Dosage: 180 MG, UNK
     Route: 048
  10. SUCRALFATE [Concomitant]
     Dosage: 1 G, UNK
     Route: 048
  11. DILTIAZEM HYDROCHLORIDE [Concomitant]
     Dosage: 240 MG, UNK
     Route: 048
  12. ATENOLOL [Concomitant]
     Dosage: 50 MG, UNK
     Route: 048
  13. ESOMEPRAZOLE MAGNESIUM [Concomitant]
     Dosage: 40 MG, UNK
     Route: 048
  14. POTASSIUM CHLORIDE [Concomitant]
     Dosage: 20 MEQ, UNK
  15. CYCLOBENZAPRINE HCL [Concomitant]
     Dosage: 5 MG, UNK
     Route: 048
  16. CYANOCOBALAMIN [Concomitant]
     Dosage: 500 A?G, UNK
  17. CALCIUM [Concomitant]
     Dosage: 500 MG, UNK
  18. ACETYLSALICYLIC ACID [Concomitant]
     Dosage: 81 MG, UNK
  19. FOLIC ACID [Concomitant]
     Dosage: 5 MG, UNK
     Route: 048
  20. COLECALCIFEROL [Concomitant]
     Dosage: UNK UNK, UNK
     Route: 048
  21. ESZOPICLONE [Concomitant]
     Dosage: 2 MG, UNK
     Route: 048
  22. EZETIMIBE/SIMVASTATIN [Concomitant]
     Dosage: 40 MG, UNK

REACTIONS (2)
  - BRONCHITIS [None]
  - SKIN LACERATION [None]
